FAERS Safety Report 5366913-1 (Version None)
Quarter: 2007Q2

REPORT INFORMATION
  Report Type: 
  Country: None (occurrence: None)
  Receive Date: 20070622
  Receipt Date: 20070305
  Transmission Date: 20071010
  Serious: No
  Sender: FDA-Public Use
  Company Number: US-ASTRAZENECA-2007UW04194

PATIENT
  Age: 5 Year
  Sex: Female
  Weight: 19.1 kg

DRUGS (1)
  1. RHINOCORT [Suspect]
     Indication: SINUSITIS
     Dosage: ONE SPRAY IN EACH NARES ONCE A DAY
     Route: 045
     Dates: start: 20070201

REACTIONS (2)
  - NASAL CONGESTION [None]
  - RHINORRHOEA [None]
